FAERS Safety Report 9374235 (Version 1)
Quarter: 2013Q2

REPORT INFORMATION
  Report Type: Spontaneous
  Country: US (occurrence: US)
  Receive Date: 20130628
  Receipt Date: 20130628
  Transmission Date: 20140414
  Serious: Yes (Other)
  Sender: FDA-Public Use
  Company Number: US-PFIZER INC-2013192146

PATIENT
  Sex: Male

DRUGS (3)
  1. LYRICA [Suspect]
     Indication: EPILEPSY
     Dosage: 300 MG IN THE MORNING AND 400 MG AT NIGHT
     Route: 048
  2. DILANTIN-125 [Suspect]
     Indication: CONVULSION
     Dosage: UNK
  3. VIMPAT [Suspect]
     Indication: CONVULSION
     Dosage: UNK

REACTIONS (1)
  - Convulsion [Unknown]
